FAERS Safety Report 13570055 (Version 1)
Quarter: 2017Q2

REPORT INFORMATION
  Report Type: Spontaneous
  Country: US (occurrence: US)
  Receive Date: 20170522
  Receipt Date: 20170522
  Transmission Date: 20170830
  Serious: No
  Sender: FDA-Public Use
  Company Number: US-BION-20160137

PATIENT
  Age: 61 Year
  Sex: Female
  Weight: 52.16 kg

DRUGS (1)
  1. MOTRIN IB [Suspect]
     Active Substance: IBUPROFEN
     Dosage: 1 DF TAKEN ONCE
     Route: 048

REACTIONS (2)
  - Dyspepsia [Unknown]
  - Chest pain [Unknown]
